FAERS Safety Report 8173155 (Version 4)
Quarter: 2014Q1

REPORT INFORMATION
  Report Type: Spontaneous
  Country: US (occurrence: US)
  Receive Date: 20111007
  Receipt Date: 20140121
  Transmission Date: 20141002
  Serious: Yes (Hospitalization)
  Sender: FDA-Public Use
  Company Number: US-BAYER-2011-091924

PATIENT
  Age: 28 Year
  Sex: Female
  Weight: 58.96 kg

DRUGS (6)
  1. YASMIN [Suspect]
     Indication: CONTRACEPTION
     Dosage: UNK
     Dates: start: 20060511, end: 20080118
  2. YAZ [Suspect]
     Indication: CONTRACEPTION
     Dosage: UNK
     Dates: start: 20080827
  3. SEASONIQUE [Concomitant]
     Dosage: UNK
     Dates: start: 200806, end: 20080827
  4. ALPRAZOLAM [Concomitant]
     Dosage: 0.25 MG, UNK
  5. NEXIUM [Concomitant]
     Dosage: 40 MG, UNK
  6. DICYCLOMINE [Concomitant]
     Dosage: 20 MG, UNK

REACTIONS (4)
  - Gallbladder disorder [None]
  - Injury [None]
  - Cholecystitis chronic [None]
  - Bile duct stone [None]
